FAERS Safety Report 5748902-8 (Version None)
Quarter: 2008Q2

REPORT INFORMATION
  Report Type: 
  Country: None (occurrence: None)
  Receive Date: 20080522
  Receipt Date: 20080507
  Transmission Date: 20081010
  Serious: Yes (Hospitalization)
  Sender: FDA-Public Use
  Company Number: 2008001020

PATIENT
  Age: 77 Year
  Sex: Male

DRUGS (9)
  1. ERLOTINIB (ERLOTINIB HCL) (TABLET) (ERLOTINIB HCL) [Suspect]
     Indication: NON-SMALL CELL LUNG CANCER
     Dosage: 150 MG, QD, ORAL
     Route: 048
     Dates: start: 20080411, end: 20080422
  2. GEMCITABINE [Suspect]
     Indication: NON-SMALL CELL LUNG CANCER
     Dosage: 1500 MG, 3X PER 4 WEEKS, INTRAVENOUS
     Route: 042
     Dates: start: 20080411, end: 20080422
  3. PREDNISOLONE [Concomitant]
  4. DIAMICRON (GLICLAZIDE) [Concomitant]
  5. COTAZYM-S FORTE [Concomitant]
  6. LOFENOXAL (LOMOTIL) [Concomitant]
  7. CLONAZEPAM [Concomitant]
  8. METOCLOPRAMIDE [Concomitant]
  9. ASPIRIN [Concomitant]

REACTIONS (11)
  - ASTHENIA [None]
  - ATRIAL FIBRILLATION [None]
  - BLOOD CALCIUM DECREASED [None]
  - BLOOD GLUCOSE INCREASED [None]
  - BLOOD UREA INCREASED [None]
  - DEHYDRATION [None]
  - EMPHYSEMA [None]
  - LYMPHANGITIS [None]
  - SYNCOPE [None]
  - THROMBOCYTOPENIA [None]
  - VENTRICULAR TACHYCARDIA [None]
